FAERS Safety Report 7189117-9 (Version None)
Quarter: 2010Q4

REPORT INFORMATION
  Report Type: 
  Country: None (occurrence: None)
  Receive Date: 20101222
  Receipt Date: 20100802
  Transmission Date: 20110411
  Serious: No
  Sender: FDA-Public Use
  Company Number: US-AMGEN-KDL428477

PATIENT

DRUGS (4)
  1. ENBREL [Suspect]
     Indication: ANKYLOSING SPONDYLITIS
     Dosage: 50 MG, QWK
     Route: 058
     Dates: start: 20060209
  2. LOVASTATIN [Concomitant]
     Dosage: 40 MG, QD
  3. CLONIDINE [Concomitant]
     Dosage: .1 MG, QD
  4. FOLIC ACID [Concomitant]
     Dosage: 1 MG, QD

REACTIONS (5)
  - ARTHRALGIA [None]
  - DIZZINESS [None]
  - DRY EYE [None]
  - DYSPNOEA [None]
  - HYPOAESTHESIA [None]
